FAERS Safety Report 10060780 (Version 1)
Quarter: 2014Q2

REPORT INFORMATION
  Report Type: Spontaneous
  Country: US (occurrence: US)
  Receive Date: 20140404
  Receipt Date: 20140404
  Transmission Date: 20141212
  Serious: Yes (Hospitalization, Other)
  Sender: FDA-Public Use
  Company Number: US-ASTRAZENECA-2014SE22637

PATIENT
  Age: 55 Year
  Sex: Male

DRUGS (3)
  1. CRESTOR [Suspect]
     Indication: BLOOD CHOLESTEROL ABNORMAL
     Route: 048
  2. BRILINTA [Suspect]
     Indication: ISCHAEMIC HEART DISEASE PROPHYLAXIS
     Route: 048
     Dates: start: 20140308
  3. ASPIRIN [Concomitant]
     Dosage: DAILY

REACTIONS (5)
  - Post procedural stroke [Unknown]
  - Visual impairment [Unknown]
  - Vision blurred [Unknown]
  - IIIrd nerve paresis [Unknown]
  - Dizziness [Unknown]
